FAERS Safety Report 12681287 (Version 6)
Quarter: 2017Q2

REPORT INFORMATION
  Report Type: Spontaneous
  Country: JP (occurrence: JP)
  Receive Date: 20160824
  Receipt Date: 20170607
  Transmission Date: 20170830
  Serious: Yes (Hospitalization)
  Sender: FDA-Public Use
  Company Number: JP-ASTRAZENECA-2016SE88854

PATIENT
  Age: 69 Year
  Sex: Male
  Weight: 57 kg

DRUGS (4)
  1. TRESIBA [Concomitant]
     Active Substance: INSULIN DEGLUDEC
     Route: 065
  2. FORXIGA [Suspect]
     Active Substance: DAPAGLIFLOZIN
     Indication: TYPE 1 DIABETES MELLITUS
     Dosage: 5 MG, EVERY MORNING AFTER BREAKFAST
     Route: 048
     Dates: start: 20160729, end: 20160814
  3. SEIBULE [Concomitant]
     Active Substance: MIGLITOL
     Route: 048
  4. TRULICITY [Concomitant]
     Active Substance: DULAGLUTIDE
     Dosage: DOSE UNKNOWN
     Route: 065
     Dates: start: 20160629, end: 20160728

REACTIONS (2)
  - Off label use [Unknown]
  - Diabetic ketoacidosis [Recovered/Resolved]

NARRATIVE: CASE EVENT DATE: 20160813
